FAERS Safety Report 9259894 (Version 2)
Quarter: 2013Q2

REPORT INFORMATION
  Report Type: Spontaneous
  Country: AU (occurrence: AU)
  Receive Date: 20130429
  Receipt Date: 20130607
  Transmission Date: 20140414
  Serious: Yes (Other)
  Sender: FDA-Public Use
  Company Number: AU-009507513-1304AUS015124

PATIENT
  Sex: 0

DRUGS (1)
  1. FOSAMAX PLUS [Suspect]
     Route: 048

REACTIONS (1)
  - Femur fracture [Unknown]
